FAERS Safety Report 13472992 (Version 1)
Quarter: 2017Q2

REPORT INFORMATION
  Report Type: Spontaneous
  Country: US (occurrence: US)
  Receive Date: 20170424
  Receipt Date: 20170424
  Transmission Date: 20170830
  Serious: Yes (Death, Other)
  Sender: FDA-Public Use
  Company Number: US-MYLANLABS-2017M1024824

PATIENT

DRUGS (1)
  1. LOPERAMIDE [Suspect]
     Active Substance: LOPERAMIDE
     Indication: DRUG USE DISORDER
     Route: 065

REACTIONS (4)
  - Cardiomegaly [Fatal]
  - Arrhythmia [Fatal]
  - Pulmonary oedema [Fatal]
  - Drug use disorder [Fatal]
